FAERS Safety Report 8723039 (Version 2)
Quarter: 2012Q4

REPORT INFORMATION
  Report Type: Report from Study
  Country: HU (occurrence: HU)
  Receive Date: 20120814
  Receipt Date: 20120911
  Transmission Date: 20130627
  Serious: Yes (Death)
  Sender: FDA-Public Use
  Company Number: PHHY2012HU069844

PATIENT
  Age: 63 Year
  Sex: Female

DRUGS (1)
  1. CGS 20267 [Suspect]
     Dosage: 2.5 mg, Daily
     Dates: start: 200711

REACTIONS (3)
  - Cerebral haemorrhage [Fatal]
  - Encephalomalacia [Fatal]
  - Cerebral infarction [None]
